FAERS Safety Report 15608463 (Version 2)
Quarter: 2019Q1

REPORT INFORMATION
  Report Type: Spontaneous
  Country: DE (occurrence: DE)
  Receive Date: 20181112
  Receipt Date: 20190114
  Transmission Date: 20190417
  Serious: Yes (Other)
  Sender: FDA-Public Use
  Company Number: PHHY2018DE153187

PATIENT
  Age: 47 Year
  Sex: Male

DRUGS (1)
  1. COSENTYX [Suspect]
     Active Substance: SECUKINUMAB
     Indication: PSORIATIC ARTHROPATHY
     Dosage: 300 MG, UNK
     Route: 065
     Dates: start: 20180420, end: 20181025

REACTIONS (4)
  - Abscess limb [Unknown]
  - Abscess [Unknown]
  - Disease recurrence [Unknown]
  - Carbuncle [Unknown]

NARRATIVE: CASE EVENT DATE: 20181017
